FAERS Safety Report 17553748 (Version 1)
Quarter: 2020Q1

REPORT INFORMATION
  Report Type: Spontaneous
  Country: CN (occurrence: CN)
  Receive Date: 20200318
  Receipt Date: 20200318
  Transmission Date: 20200409
  Serious: Yes (Hospitalization)
  Sender: FDA-Public Use
  Company Number: CN-AUROBINDO-AUR-APL-2020-013360

PATIENT
  Age: 33 Year
  Sex: Female

DRUGS (6)
  1. FLUDARABINE PHOSPHATE. [Suspect]
     Active Substance: FLUDARABINE PHOSPHATE
     Indication: CHRONIC LYMPHOCYTIC LEUKAEMIA
     Dosage: 50 MILLIGRAM, ONCE A DAY
     Route: 042
     Dates: start: 20200125
  2. SODIUM CHLORIDE. [Concomitant]
     Active Substance: SODIUM CHLORIDE
     Dosage: 350 MILLILITER, ONCE A DAY
     Route: 042
     Dates: start: 20200131
  3. SODIUM CHLORIDE. [Concomitant]
     Active Substance: SODIUM CHLORIDE
     Indication: PRODUCT USED FOR UNKNOWN INDICATION
     Dosage: 100 MILLILITER, ONCE A DAY
     Route: 042
     Dates: start: 20200125, end: 20200127
  4. EVOMELA [Suspect]
     Active Substance: MELPHALAN HYDROCHLORIDE
     Indication: ACUTE LEUKAEMIA
     Dosage: 150 MILLIGRAM, ONCE A DAY
     Route: 042
     Dates: start: 20200130
  5. SODIUM CHLORIDE. [Concomitant]
     Active Substance: SODIUM CHLORIDE
     Dosage: 80 MILLILITER, FOUR TIMES/DAY
     Route: 042
     Dates: start: 20200128, end: 20200130
  6. BUSULFEX [Suspect]
     Active Substance: BUSULFAN
     Indication: ACUTE LEUKAEMIA
     Dosage: 48 MILLIGRAM, ONCE A DAY (EVERY 6 HOUR)
     Route: 042
     Dates: start: 20200128

REACTIONS (7)
  - Odynophagia [Recovering/Resolving]
  - Off label use [Unknown]
  - Oropharyngeal pain [Recovering/Resolving]
  - Paraesthesia oral [Recovering/Resolving]
  - Chest pain [Recovering/Resolving]
  - Mouth ulceration [Recovering/Resolving]
  - Mouth haemorrhage [Recovering/Resolving]

NARRATIVE: CASE EVENT DATE: 20200203
